FAERS Safety Report 4664388-9 (Version None)
Quarter: 2005Q2

REPORT INFORMATION
  Report Type: 
  Country: None (occurrence: None)
  Receive Date: 20050518
  Receipt Date: 20041217
  Transmission Date: 20051028
  Serious: Yes (Other)
  Sender: FDA-Public Use
  Company Number: DE-MERCK-0412DEU00161

PATIENT
  Age: 66 Year
  Sex: Female

DRUGS (7)
  1. TRAMADOL HCL [Concomitant]
     Indication: ANALGESIC THERAPY
     Route: 048
     Dates: start: 20000314, end: 20041206
  2. ENALAPRIL MALEATE [Concomitant]
     Indication: HYPERTENSION
     Route: 048
     Dates: start: 20040322
  3. VIOXX [Suspect]
     Indication: POLYARTHRITIS
     Route: 048
     Dates: start: 19991216, end: 20040928
  4. VIOXX [Suspect]
     Indication: ANALGESIC THERAPY
     Route: 048
     Dates: start: 19991216, end: 20040928
  5. ASPIRIN [Concomitant]
     Route: 065
  6. HYDROCHLOROTHIAZIDE [Concomitant]
     Indication: HYPERTENSION
     Route: 048
     Dates: start: 20040322
  7. AMLODIPINE MESYLATE [Concomitant]
     Route: 065

REACTIONS (11)
  - BACK PAIN [None]
  - CARDIAC DISORDER [None]
  - CEREBROVASCULAR ACCIDENT [None]
  - DIARRHOEA [None]
  - DIASTOLIC DYSFUNCTION [None]
  - ELECTROCARDIOGRAM ABNORMAL [None]
  - EMBOLISM [None]
  - HYPERTENSION [None]
  - ULTRASOUND DOPPLER ABNORMAL [None]
  - VASCULAR ENCEPHALOPATHY [None]
  - WRONG TECHNIQUE IN DRUG USAGE PROCESS [None]
